FAERS Safety Report 5375429-8 (Version None)
Quarter: 2007Q2

REPORT INFORMATION
  Report Type: 
  Country: None (occurrence: None)
  Receive Date: 20070629
  Receipt Date: 20070627
  Transmission Date: 20071010
  Serious: Yes (Other)
  Sender: FDA-Public Use
  Company Number: US-ROXANE LABORATORIES, INC-2007-DE-03797GD

PATIENT
  Age: 31 Year
  Sex: Female

DRUGS (4)
  1. SERTRALINE [Suspect]
     Indication: PANIC DISORDER
  2. SERTRALINE [Suspect]
  3. ALPRAZOLAM [Suspect]
     Indication: PANIC DISORDER
  4. PAROXETINE HCL [Suspect]
     Indication: PANIC DISORDER

REACTIONS (6)
  - AKATHISIA [None]
  - ALCOHOL USE [None]
  - DEPRESSION [None]
  - HOMICIDE [None]
  - OBSESSIVE-COMPULSIVE PERSONALITY DISORDER [None]
  - SUICIDAL IDEATION [None]
